FAERS Safety Report 4812656-X (Version None)
Quarter: 2005Q4

REPORT INFORMATION
  Report Type: 
  Country: None (occurrence: None)
  Receive Date: 20051028
  Receipt Date: 20041104
  Transmission Date: 20060501
  Serious: No
  Sender: FDA-Public Use
  Company Number: US-GLAXOSMITHKLINE-A0532711A

PATIENT
  Age: 40 Year
  Sex: Female

DRUGS (5)
  1. ADVAIR DISKUS 100/50 [Suspect]
     Indication: BRONCHITIS
     Dosage: 1PUFF TWICE PER DAY
     Route: 055
     Dates: start: 20041102
  2. CEFZIL [Concomitant]
  3. ZYRTEC [Concomitant]
  4. DILANTIN [Concomitant]
  5. ASPIRIN [Concomitant]

REACTIONS (1)
  - SHOULDER PAIN [None]
